FAERS Safety Report 16891343 (Version 1)
Quarter: 2019Q4

REPORT INFORMATION
  Report Type: Spontaneous
  Country: US (occurrence: US)
  Receive Date: 20191004
  Receipt Date: 20191004
  Transmission Date: 20200122
  Serious: Yes (Other)
  Sender: FDA-Public Use
  Company Number: None

PATIENT
  Sex: Male

DRUGS (1)
  1. THC VAPE [Suspect]
     Active Substance: DEVICE\HERBALS

REACTIONS (3)
  - Feeling abnormal [None]
  - Malaise [None]
  - Chest discomfort [None]

NARRATIVE: CASE EVENT DATE: 20170117
